FAERS Safety Report 8585169-X (Version None)
Quarter: 2012Q3

REPORT INFORMATION
  Report Type: 
  Country: None (occurrence: None)
  Receive Date: 20120810
  Receipt Date: 20120803
  Transmission Date: 20120928
  Serious: Yes (Hospitalization)
  Sender: FDA-Public Use
  Company Number: PHHY2012JP064311

PATIENT
  Age: 48 Year
  Sex: Male

DRUGS (3)
  1. NEORAL [Suspect]
     Indication: BONE MARROW TRANSPLANT
     Dosage: 60 MG, UNK
     Route: 048
     Dates: start: 20081001
  2. NEORAL [Suspect]
     Indication: PROPHYLAXIS AGAINST GRAFT VERSUS HOST DISEASE
     Dosage: 20 MG, UNK
     Route: 048
     Dates: start: 20090101, end: 20090401
  3. METHOTREXATE [Concomitant]
     Indication: PROPHYLAXIS AGAINST GRAFT VERSUS HOST DISEASE
     Dosage: 12 MG, UNK

REACTIONS (31)
  - NEPHROPATHY TOXIC [None]
  - FOCAL SEGMENTAL GLOMERULOSCLEROSIS [None]
  - GLOMERULONEPHRITIS MEMBRANOUS [None]
  - KIDNEY FIBROSIS [None]
  - WEIGHT INCREASED [None]
  - MUCOSAL ULCERATION [None]
  - PALMAR-PLANTAR ERYTHRODYSAESTHESIA SYNDROME [None]
  - PLEURAL EFFUSION [None]
  - CHRONIC GRAFT VERSUS HOST DISEASE [None]
  - TOXICITY TO VARIOUS AGENTS [None]
  - RENAL TUBULAR ATROPHY [None]
  - OEDEMA PERIPHERAL [None]
  - LYMPHADENOPATHY [None]
  - GAMMA-GLUTAMYLTRANSFERASE INCREASED [None]
  - TUBULOINTERSTITIAL NEPHRITIS [None]
  - OCCULT BLOOD POSITIVE [None]
  - RENAL ARTERY HYPERPLASIA [None]
  - PYREXIA [None]
  - COUGH [None]
  - BLOOD ALBUMIN DECREASED [None]
  - ASCITES [None]
  - NEPHROTIC SYNDROME [None]
  - OROPHARYNGEAL PAIN [None]
  - PROTEIN TOTAL DECREASED [None]
  - PIGMENTATION DISORDER [None]
  - PROTEIN URINE PRESENT [None]
  - ASPARTATE AMINOTRANSFERASE INCREASED [None]
  - BLOOD CHOLESTEROL INCREASED [None]
  - OEDEMA [None]
  - DYSPNOEA [None]
  - BLOOD PRESSURE ABNORMAL [None]
